FAERS Safety Report 5235117-5 (Version None)
Quarter: 2007Q1

REPORT INFORMATION
  Report Type: 
  Country: None (occurrence: None)
  Receive Date: 20070207
  Receipt Date: 20070129
  Transmission Date: 20070707
  Serious: Yes (Death)
  Sender: FDA-Public Use
  Company Number: 15591

PATIENT
  Age: 32 Year
  Sex: Female

DRUGS (2)
  1. MITOXANTRONE [Suspect]
     Indication: RELAPSING-REMITTING MULTIPLE SCLEROSIS
     Dosage: 8 MG/M2 MONTHLY UNK
     Dates: start: 20040301
  2. MITOXANTRONE [Suspect]
     Indication: RELAPSING-REMITTING MULTIPLE SCLEROSIS
     Dosage: 12 MG/M2 PER CYCLE UNK
     Dates: end: 20060601

REACTIONS (15)
  - ABDOMINAL DISTENSION [None]
  - CARDIAC FAILURE [None]
  - CARDIOGENIC SHOCK [None]
  - CARDIOTOXICITY [None]
  - COUGH [None]
  - DISSEMINATED INTRAVASCULAR COAGULATION [None]
  - DYSPNOEA [None]
  - GENERAL PHYSICAL HEALTH DETERIORATION [None]
  - HYPOTENSION [None]
  - MULTI-ORGAN FAILURE [None]
  - PALPITATIONS [None]
  - RENAL IMPAIRMENT [None]
  - TACHYCARDIA [None]
  - TACHYPNOEA [None]
  - UPPER RESPIRATORY TRACT INFECTION [None]
